FAERS Safety Report 4428144-9 (Version None)
Quarter: 2004Q3

REPORT INFORMATION
  Report Type: 
  Country: None (occurrence: None)
  Receive Date: 20040726
  Receipt Date: 20040511
  Transmission Date: 20050211
  Serious: No
  Sender: FDA-Public Use
  Company Number: USA030537101

PATIENT
  Age: 66 Year
  Sex: Female
  Weight: 51 kg

DRUGS (9)
  1. FORTEO [Suspect]
     Indication: OSTEOPOROSIS
     Dosage: 20 UG DAY
     Dates: start: 20030401
  2. ASPIRIN [Concomitant]
  3. ATACAND HCT [Concomitant]
  4. NITROBID (GLYCERYL TRINITRATE) [Concomitant]
  5. NEXIUM [Concomitant]
  6. CALCIUM [Concomitant]
  7. ZANTAC [Concomitant]
  8. PREVACID [Concomitant]
  9. ACIPHEX [Concomitant]

REACTIONS (8)
  - BONE DENSITY DECREASED [None]
  - DIARRHOEA [None]
  - DIZZINESS [None]
  - EATING DISORDER SYMPTOM [None]
  - GASTROOESOPHAGEAL REFLUX DISEASE [None]
  - INJECTION SITE HAEMORRHAGE [None]
  - NAIL DISORDER [None]
  - THROAT IRRITATION [None]
